FAERS Safety Report 18157879 (Version 2)
Quarter: 2020Q3

REPORT INFORMATION
  Report Type: Spontaneous
  Country: US (occurrence: US)
  Receive Date: 20200817
  Receipt Date: 20200828
  Transmission Date: 20201103
  Serious: Yes (Life-Threatening, Hospitalization, Disabling)
  Sender: FDA-Public Use
  Company Number: NVSC2020US225672

PATIENT
  Age: 48 Year
  Sex: Male
  Weight: 82.8 kg

DRUGS (2)
  1. TASIGNA [Suspect]
     Active Substance: NILOTINIB
     Indication: CHRONIC MYELOID LEUKAEMIA
     Dosage: 400 MG
     Route: 048
     Dates: start: 20200804, end: 20200807
  2. ALLOPURINOL. [Suspect]
     Active Substance: ALLOPURINOL
     Indication: PRODUCT USED FOR UNKNOWN INDICATION
     Dosage: 100 MG
     Route: 048
     Dates: start: 20200804, end: 20200807

REACTIONS (7)
  - Stevens-Johnson syndrome [Unknown]
  - Skin oedema [Unknown]
  - Pruritus [Unknown]
  - Blister [Unknown]
  - Rash [Unknown]
  - Papule [Unknown]
  - Urticaria [Unknown]

NARRATIVE: CASE EVENT DATE: 20200807
